FAERS Safety Report 23864346 (Version 2)
Quarter: 2024Q2

REPORT INFORMATION
  Report Type: Spontaneous
  Country: US (occurrence: US)
  Receive Date: 20240516
  Receipt Date: 20240606
  Transmission Date: 20240716
  Serious: Yes (Other)
  Sender: FDA-Public Use
  Company Number: US-INTRA-CELLULAR THERAPIES, INC.-2024ICT00726

PATIENT
  Age: 37 Year
  Sex: Female
  Weight: 67.664 kg

DRUGS (3)
  1. CAPLYTA [Suspect]
     Active Substance: LUMATEPERONE
     Indication: Major depression
     Dosage: 42 MG, 1X/DAY
     Route: 048
     Dates: start: 20240326, end: 20240430
  2. LITHIUM [Concomitant]
     Active Substance: LITHIUM
     Dosage: 300 MG, 2X/DAY
  3. WELLBUTRIN [Concomitant]
     Active Substance: BUPROPION HYDROCHLORIDE
     Dosage: 75 MG, 1X/DAY (FOR ONE WEEK THEN STOP)

REACTIONS (9)
  - Hypotension [Recovering/Resolving]
  - Weight decreased [Unknown]
  - Hypophagia [Unknown]
  - Hypertension [Recovering/Resolving]
  - Erythema [Unknown]
  - Decreased appetite [Unknown]
  - Sleep disorder [Unknown]
  - Off label use [Recovered/Resolved]
  - Tremor [Unknown]

NARRATIVE: CASE EVENT DATE: 20240101
